FAERS Safety Report 7477573-8 (Version None)
Quarter: 2011Q2

REPORT INFORMATION
  Report Type: 
  Country: None (occurrence: None)
  Receive Date: 20110513
  Receipt Date: 20110429
  Transmission Date: 20111010
  Serious: Yes (Other)
  Sender: FDA-Public Use
  Company Number: US-JNJFOC-20110501364

PATIENT
  Age: 14 Year
  Sex: Male

DRUGS (2)
  1. MELATONIN [Concomitant]
     Route: 065
  2. CONCERTA [Suspect]
     Indication: ATTENTION DEFICIT/HYPERACTIVITY DISORDER
     Route: 048

REACTIONS (4)
  - MYOCLONUS [None]
  - GAIT DISTURBANCE [None]
  - MUSCULAR WEAKNESS [None]
  - MUSCLE SPASMS [None]
